FAERS Safety Report 7951049 (Version 5)
Quarter: 2012Q4

REPORT INFORMATION
  Report Type: 
  Country: US (occurrence: US)
  Receive Date: 20110519
  Receipt Date: 20121107
  Transmission Date: 20130627
  Serious: No
  Sender: FDA-Public Use
  Company Number: US-BIOGENIDEC-2011BI017760

PATIENT
  Age: 44 Year
  Sex: Female

DRUGS (2)
  1. TYSABRI [Suspect]
     Indication: MULTIPLE SCLEROSIS
     Route: 042
     Dates: start: 20110329
  2. OXYBUTYNIN [Concomitant]
     Indication: MICTURITION URGENCY

REACTIONS (19)
  - Weight increased [Not Recovered/Not Resolved]
  - Pain in extremity [Not Recovered/Not Resolved]
  - Abdominal pain [Recovered/Resolved]
  - Muscular weakness [Not Recovered/Not Resolved]
  - Poor quality sleep [Not Recovered/Not Resolved]
  - Vision blurred [Recovered/Resolved]
  - Diplopia [Recovered/Resolved]
  - Coordination abnormal [Not Recovered/Not Resolved]
  - Sensation of heaviness [Not Recovered/Not Resolved]
  - Fluid retention [Not Recovered/Not Resolved]
  - Anaemia [Not Recovered/Not Resolved]
  - Palpitations [Recovered/Resolved]
  - Malaise [Not Recovered/Not Resolved]
  - Headache [Recovered/Resolved]
  - Asthenia [Not Recovered/Not Resolved]
  - Fatigue [Not Recovered/Not Resolved]
  - Dizziness [Recovered/Resolved]
  - Chills [Recovered/Resolved]
  - Pruritus [Recovered/Resolved]
